FAERS Safety Report 24845961 (Version 1)
Quarter: 2025Q1

REPORT INFORMATION
  Report Type: Report from Study
  Country: ZA (occurrence: ZA)
  Receive Date: 20250115
  Receipt Date: 20250115
  Transmission Date: 20250409
  Serious: Yes (Death)
  Sender: ROCHE
  Company Number: ZA-ROCHE-10000157467

PATIENT
  Sex: Male

DRUGS (1)
  1. AVASTIN [Suspect]
     Active Substance: BEVACIZUMAB
     Indication: Macular degeneration
     Route: 050

REACTIONS (3)
  - Off label use [Unknown]
  - Off label use [Unknown]
  - Death [Fatal]
